FAERS Safety Report 5898247-0 (Version None)
Quarter: 2008Q3

REPORT INFORMATION
  Report Type: 
  Country: None (occurrence: None)
  Receive Date: 20080925
  Receipt Date: 20071001
  Transmission Date: 20090109
  Serious: No
  Sender: FDA-Public Use
  Company Number: A0667902A

PATIENT
  Age: 40 Year
  Sex: Female

DRUGS (3)
  1. WELLBUTRIN XL [Suspect]
     Indication: DEPRESSION
     Dosage: 150MG THREE TIMES PER DAY
     Route: 048
     Dates: start: 20050101
  2. PREVACID [Concomitant]
  3. ATIVAN [Concomitant]

REACTIONS (2)
  - GASTROOESOPHAGEAL REFLUX DISEASE [None]
  - PHARMACEUTICAL PRODUCT COMPLAINT [None]
